FAERS Safety Report 23984963 (Version 1)
Quarter: 2024Q2

REPORT INFORMATION
  Report Type: Spontaneous
  Country: US (occurrence: US)
  Receive Date: 20240618
  Receipt Date: 20240618
  Transmission Date: 20240715
  Serious: Yes (Other)
  Sender: FDA-Public Use
  Company Number: US-JNJFOC-20240621716

PATIENT
  Age: 15 Year
  Sex: Male

DRUGS (2)
  1. BALVERSA [Suspect]
     Active Substance: ERDAFITINIB
     Indication: Glioneuronal tumour
     Route: 048
  2. BALVERSA [Suspect]
     Active Substance: ERDAFITINIB
     Route: 048

REACTIONS (6)
  - Spinal cord compression [Unknown]
  - Myelopathy [Unknown]
  - Kyphoscoliosis [Unknown]
  - Muscle contracture [Unknown]
  - Growth accelerated [Unknown]
  - Blood phosphorus increased [Unknown]
